FAERS Safety Report 9311527 (Version 1)
Quarter: 2013Q1

REPORT INFORMATION
  Report Type: Spontaneous
  Country: US (occurrence: None)
  Receive Date: 20121204
  Receipt Date: 20121204
  Transmission Date: 20140127
  Serious: Yes (Hospitalization)
  Sender: FDA-Public Use
  Company Number: CIO12014449

PATIENT
  Age: 23 Month
  Sex: Female

DRUGS (1)
  1. NYQUIL [Suspect]
     Route: 048
     Dates: start: 20120414, end: 20120414

REACTIONS (3)
  - Toxicity to various agents [None]
  - Accidental exposure to product by child [None]
  - Failure of child resistant mechanism for pharmaceutical product [None]
